FAERS Safety Report 5918976-X (Version None)
Quarter: 2008Q3

REPORT INFORMATION
  Report Type: 
  Country: None (occurrence: None)
  Receive Date: 20080909
  Receipt Date: 20060810
  Transmission Date: 20090109
  Serious: Yes (Death, Hospitalization)
  Sender: FDA-Public Use
  Company Number: 163-20785-06010484

PATIENT
  Age: 64 Year
  Sex: Male
  Weight: 90 kg

DRUGS (10)
  1. THALOMID [Suspect]
     Indication: MULTIPLE MYELOMA
     Dosage: ORAL
     Route: 048
     Dates: start: 20050518, end: 20050101
  2. THALOMID [Suspect]
     Indication: MULTIPLE MYELOMA
     Dosage: ORAL
     Route: 048
     Dates: start: 20050715, end: 20050101
  3. MELPHALAN (MELPHALAN) [Suspect]
     Indication: MULTIPLE MYELOMA
     Dosage: 400 MG, INTRAVENOUS
     Route: 042
     Dates: start: 20050914, end: 20050101
  4. BORTEZOMIB (BORTEZOMIB) [Concomitant]
  5. DEXAMETHASONE TAB [Concomitant]
  6. CISPLATIN [Concomitant]
  7. ADRIAMYCIN PFS [Concomitant]
  8. CYCLOPHOSPHAMIDE [Concomitant]
  9. ETOPOSIDE [Concomitant]
  10. IMIPENEM (IMIPENEM) [Concomitant]

REACTIONS (1)
  - DISSEMINATED CYTOMEGALOVIRAL INFECTION [None]
